FAERS Safety Report 10053553 (Version 1)
Quarter: 2014Q2

REPORT INFORMATION
  Report Type: Spontaneous
  Country: US (occurrence: US)
  Receive Date: 20140402
  Receipt Date: 20140402
  Transmission Date: 20141212
  Serious: No
  Sender: FDA-Public Use
  Company Number: US-PFIZER INC-2014090296

PATIENT
  Age: 56 Year
  Sex: Female
  Weight: 145.13 kg

DRUGS (1)
  1. ZYVOX [Suspect]
     Indication: LOCALISED INFECTION
     Dosage: 600 MG, 2X/DAY
     Route: 048
     Dates: start: 20140213, end: 20140218

REACTIONS (1)
  - Rash [Unknown]
